FAERS Safety Report 20232104 (Version 1)
Quarter: 2021Q4

REPORT INFORMATION
  Report Type: Spontaneous
  Country: NO (occurrence: ES)
  Receive Date: 20211227
  Receipt Date: 20211227
  Transmission Date: 20220304
  Serious: Yes (Other)
  Sender: FDA-Public Use
  Company Number: None

PATIENT
  Age: 77 Year
  Sex: Male
  Weight: 98 kg

DRUGS (6)
  1. ATORVASTATIN XIROMED [Concomitant]
     Indication: Hypercholesterolaemia
     Dosage: 1 TABLETT DAGLIG
     Route: 048
  2. JARDIANCE [Suspect]
     Active Substance: EMPAGLIFLOZIN
     Indication: Type 2 diabetes mellitus
     Route: 048
     Dates: start: 20211007, end: 20211206
  3. FISH OIL [Concomitant]
     Active Substance: FISH OIL
     Indication: Product used for unknown indication
  4. METFORMIN ORIFARM [Concomitant]
     Indication: Type 2 diabetes mellitus
     Dosage: 500 MG 5 GANGER DAGLIG
     Route: 048
  5. BEVACOMB [Concomitant]
     Indication: Hypertension
     Dosage: 1 TABLETT DAGLIG
     Route: 048
  6. MAGNESIUM [Concomitant]
     Active Substance: MAGNESIUM
     Indication: Product used for unknown indication

REACTIONS (5)
  - Rash pruritic [Recovering/Resolving]
  - Rash erythematous [Recovering/Resolving]
  - Blister [Recovering/Resolving]
  - Pemphigoid [Recovering/Resolving]
  - Urticaria [Unknown]

NARRATIVE: CASE EVENT DATE: 20211105
